FAERS Safety Report 4605202-7 (Version None)
Quarter: 2005Q1

REPORT INFORMATION
  Report Type: 
  Country: None (occurrence: None)
  Receive Date: 20050214
  Receipt Date: 20041105
  Transmission Date: 20050727
  Serious: No
  Sender: FDA-Public Use
  Company Number: USA041183379

PATIENT
  Age: 58 Year
  Sex: Male
  Weight: 81 kg

DRUGS (4)
  1. CIALIS [Suspect]
     Dosage: 20 MG
     Dates: start: 20031101
  2. LISINOPRIL [Concomitant]
  3. BUPROPION HCL [Concomitant]
  4. NALTREXONE [Concomitant]

REACTIONS (1)
  - MYALGIA [None]
